FAERS Safety Report 16961618 (Version 1)
Quarter: 2019Q4

REPORT INFORMATION
  Report Type: Spontaneous
  Country: US (occurrence: US)
  Receive Date: 20191025
  Receipt Date: 20191025
  Transmission Date: 20200122
  Serious: Yes (Other)
  Sender: FDA-Public Use
  Company Number: US-ASTELLAS-2019US042007

PATIENT
  Age: 75 Year
  Sex: Female

DRUGS (1)
  1. MYRBETRIQ [Suspect]
     Active Substance: MIRABEGRON
     Indication: URINARY INCONTINENCE
     Route: 065
     Dates: start: 2017, end: 201910

REACTIONS (3)
  - Colon cancer [Unknown]
  - Product dose omission [Unknown]
  - Inability to afford medication [Unknown]

NARRATIVE: CASE EVENT DATE: 201904
